FAERS Safety Report 5644382-1 (Version None)
Quarter: 2008Q1

REPORT INFORMATION
  Report Type: 
  Country: None (occurrence: None)
  Receive Date: 20080229
  Receipt Date: 20080225
  Transmission Date: 20080703
  Serious: Yes (Hospitalization)
  Sender: FDA-Public Use
  Company Number: FR-BRISTOL-MYERS SQUIBB COMPANY-14095319

PATIENT
  Age: 59 Year
  Sex: Male

DRUGS (15)
  1. GLUCOPHAGE [Suspect]
     Route: 048
  2. SKENAN [Suspect]
     Indication: SCIATICA
     Route: 048
     Dates: start: 20070727, end: 20070801
  3. PLAVIX [Suspect]
     Route: 048
  4. CARDENSIEL [Suspect]
     Route: 048
  5. MIOREL [Suspect]
     Dosage: 4MG CAPSULE
     Route: 048
     Dates: start: 20070730, end: 20070801
  6. KARDEGIC [Suspect]
     Route: 048
  7. TRIATEC [Suspect]
     Dosage: TABLET FORM
     Route: 048
  8. LASILIX [Suspect]
     Dosage: TABLET FORM
     Route: 048
  9. TAHOR [Suspect]
     Dosage: TABLET FORM
     Route: 048
  10. SPIRIVA [Suspect]
     Route: 055
  11. SYMBICORT [Suspect]
     Dosage: 400/12 MICROGRAM (2 DOSAGE FORM)
     Route: 055
  12. NORSET [Suspect]
     Dosage: 15MG TABLET
     Route: 048
  13. AMARYL [Suspect]
     Route: 048
  14. LEVEMIR [Suspect]
     Route: 058
  15. CORDARONE [Concomitant]
     Route: 048

REACTIONS (1)
  - URINARY RETENTION [None]
